FAERS Safety Report 13887976 (Version 8)
Quarter: 2018Q1

REPORT INFORMATION
  Report Type: Report from Study
  Country: US (occurrence: US)
  Receive Date: 20170822
  Receipt Date: 20180314
  Transmission Date: 20180508
  Serious: Yes (Hospitalization, Other)
  Sender: FDA-Public Use
  Company Number: US-GILEAD-2017-0288066

PATIENT
  Age: 66 Year
  Sex: Female

DRUGS (8)
  1. ORENITRAM [Suspect]
     Active Substance: TREPROSTINIL
     Indication: PRODUCT USED FOR UNKNOWN INDICATION
     Route: 065
  2. VELETRI [Suspect]
     Active Substance: EPOPROSTENOL
     Indication: PRODUCT USED FOR UNKNOWN INDICATION
     Dosage: 14 NG/KG/MIN
     Route: 065
  3. AMBRISENTAN [Suspect]
     Active Substance: AMBRISENTAN
     Indication: PRODUCT USED FOR UNKNOWN INDICATION
     Dosage: 5 MG, QD
     Route: 065
     Dates: start: 20170110, end: 201712
  4. AMLODIPINE [Concomitant]
     Active Substance: AMLODIPINE BESYLATE
  5. LASIX [Concomitant]
     Active Substance: FUROSEMIDE
  6. VELETRI [Suspect]
     Active Substance: EPOPROSTENOL
     Dosage: 20 NG/KG/MIN
     Route: 065
     Dates: start: 201802
  7. ADCIRCA [Concomitant]
     Active Substance: TADALAFIL
  8. VELETRI [Suspect]
     Active Substance: EPOPROSTENOL
     Dosage: 19 NG/KG/MIN
     Route: 065

REACTIONS (17)
  - Disease progression [Unknown]
  - Radiotherapy [Unknown]
  - Pain in extremity [Unknown]
  - Insomnia [Unknown]
  - Pain in jaw [Not Recovered/Not Resolved]
  - Anxiety [Not Recovered/Not Resolved]
  - Heart rate increased [Unknown]
  - Flushing [Not Recovered/Not Resolved]
  - Insomnia [Not Recovered/Not Resolved]
  - Application site pruritus [Not Recovered/Not Resolved]
  - Diarrhoea [Unknown]
  - Palpitations [Not Recovered/Not Resolved]
  - Dyspnoea [Not Recovered/Not Resolved]
  - Pulmonary hypertension [Unknown]
  - Emphysema [Not Recovered/Not Resolved]
  - Hypotension [Unknown]
  - Headache [Not Recovered/Not Resolved]

NARRATIVE: CASE EVENT DATE: 20170810
